FAERS Safety Report 9060319 (Version 3)
Quarter: 2013Q2

REPORT INFORMATION
  Report Type: Spontaneous
  Country: SE (occurrence: SE)
  Receive Date: 20130212
  Receipt Date: 20130502
  Transmission Date: 20140414
  Serious: Yes (Other)
  Sender: FDA-Public Use
  Company Number: SE-ROCHE-1184832

PATIENT
  Age: 81 Year
  Sex: Female

DRUGS (5)
  1. LUCENTIS [Suspect]
     Indication: MACULAR DEGENERATION
     Dosage: 10 MG/ML
     Route: 050
     Dates: start: 20110307
  2. LUCENTIS [Suspect]
     Route: 050
     Dates: start: 20121030
  3. LUCENTIS [Suspect]
     Route: 050
     Dates: start: 20130108
  4. LUCENTIS [Suspect]
     Route: 050
     Dates: start: 201212
  5. TROMBYL [Concomitant]
     Route: 065
     Dates: start: 20130227

REACTIONS (2)
  - Transient ischaemic attack [Recovered/Resolved]
  - White matter lesion [Unknown]
